FAERS Safety Report 10974528 (Version 2)
Quarter: 2015Q2

REPORT INFORMATION
  Report Type: Spontaneous
  Country: GB (occurrence: GB)
  Receive Date: 20150401
  Receipt Date: 20150414
  Transmission Date: 20150821
  Serious: Yes (Other)
  Sender: FDA-Public Use
  Company Number: PHHY2015GB035374

PATIENT
  Age: 70 Year
  Sex: Female

DRUGS (3)
  1. RAMIPRIL. [Suspect]
     Active Substance: RAMIPRIL
     Indication: PRODUCT USED FOR UNKNOWN INDICATION
     Route: 065
  2. CLOPIDOGREL [Suspect]
     Active Substance: CLOPIDOGREL BISULFATE
     Indication: HYPERTENSION
     Route: 065
  3. ARCOXIA [Suspect]
     Active Substance: ETORICOXIB
     Indication: PRODUCT USED FOR UNKNOWN INDICATION
     Dosage: UNK (DOSE AND FREQUENCY: UNKNOWN OR MORE THAN ONE (DOSAGE FORM UNSPECIFIED) PER DAY)
     Route: 048

REACTIONS (5)
  - Mouth ulceration [Unknown]
  - Hypertension [Not Recovered/Not Resolved]
  - Feeding disorder [Unknown]
  - Cough [Unknown]
  - Transient ischaemic attack [Unknown]
